FAERS Safety Report 7589415-0 (Version None)
Quarter: 2011Q3

REPORT INFORMATION
  Report Type: 
  Country: None (occurrence: None)
  Receive Date: 20110705
  Receipt Date: 20110627
  Transmission Date: 20111222
  Serious: Yes (Hospitalization)
  Sender: FDA-Public Use
  Company Number: US-SANOFI-AVENTIS-2010SA076922

PATIENT
  Sex: Female
  Weight: 46 kg

DRUGS (5)
  1. LABETALOL HCL [Concomitant]
  2. PLAVIX [Suspect]
     Route: 048
     Dates: start: 20100101, end: 20101101
  3. PLAVIX [Suspect]
     Route: 048
     Dates: start: 20101201
  4. PLAVIX [Suspect]
     Route: 048
     Dates: start: 20091101, end: 20100701
  5. XANAX [Concomitant]

REACTIONS (8)
  - MEDICATION ERROR [None]
  - TRANSIENT ISCHAEMIC ATTACK [None]
  - MUSCULAR WEAKNESS [None]
  - CONTUSION [None]
  - FEELING ABNORMAL [None]
  - PRODUCT ODOUR ABNORMAL [None]
  - DROOLING [None]
  - DYSGEUSIA [None]
